FAERS Safety Report 6822788-2 (Version None)
Quarter: 2010Q3

REPORT INFORMATION
  Report Type: 
  Country: None (occurrence: None)
  Receive Date: 20100706
  Receipt Date: 20100706
  Transmission Date: 20110219
  Serious: No
  Sender: FDA-Public Use
  Company Number: None

PATIENT
  Age: 72 Year
  Sex: Female
  Weight: 56.246 kg

DRUGS (1)
  1. CLONIDINE [Suspect]
     Indication: HYPERTENSION
     Dosage: APPLY ONCE A WEEK; PATCH COMES OFF
     Dates: start: 20091215, end: 20100705

REACTIONS (2)
  - PRODUCT ADHESION ISSUE [None]
  - PRODUCT SIZE ISSUE [None]
